FAERS Safety Report 21186389 (Version 1)
Quarter: 2022Q3

REPORT INFORMATION
  Report Type: Spontaneous
  Country: CA (occurrence: CA)
  Receive Date: 20220808
  Receipt Date: 20220808
  Transmission Date: 20221027
  Serious: Yes (Death, Life-Threatening, Hospitalization, Disabling, Other)
  Sender: FDA-Public Use
  Company Number: CA-BAXTER-2022BAX016617

PATIENT
  Age: 57 Year
  Sex: Female
  Weight: 56 kg

DRUGS (3)
  1. CYCLOPHOSPHAMIDE [Suspect]
     Active Substance: CYCLOPHOSPHAMIDE
     Indication: Transplant
     Dosage: 2800 MG ONCE, DOSAGE FORM: TABLETS (ROUTE: UNKNOWN)
     Route: 065
  2. LAPINE T-LYMPHOCYTE IMMUNE GLOBULIN [Concomitant]
     Active Substance: LAPINE T-LYMPHOCYTE IMMUNE GLOBULIN
     Indication: Product used for unknown indication
     Dosage: DOSAGE FORM: POWDER FOR SOLUTION INTRAVENOUS
     Route: 065
  3. TACROLIMUS [Concomitant]
     Active Substance: TACROLIMUS
     Indication: Product used for unknown indication
     Dosage: DOSAGE FORM: CAPSULES
     Route: 065

REACTIONS (6)
  - Atrial fibrillation [Fatal]
  - Cardiotoxicity [Fatal]
  - Chest pain [Fatal]
  - Organ failure [Fatal]
  - Pericarditis constrictive [Fatal]
  - Supraventricular tachycardia [Fatal]
